FAERS Safety Report 7929879-3 (Version None)
Quarter: 2011Q4

REPORT INFORMATION
  Report Type: 
  Country: None (occurrence: None)
  Receive Date: 20111121
  Receipt Date: 20111117
  Transmission Date: 20120403
  Serious: No
  Sender: FDA-Public Use
  Company Number: US-PFIZER INC-2011282360

PATIENT
  Sex: Male
  Weight: 84.8 kg

DRUGS (12)
  1. ALLOPURINOL [Concomitant]
     Dosage: 300 MG, 1X/DAY
  2. BENAZEPRIL [Concomitant]
     Dosage: 20 MG, 1X/DAY
  3. CARVEDILOL [Concomitant]
     Dosage: 6.25 MG, 2X/DAY
  4. NITROSTAT [Concomitant]
     Dosage: 0.4 MG, AS NEEDED
     Route: 060
  5. VITAMIN B6 [Concomitant]
     Dosage: UNK
  6. FOLIC ACID [Concomitant]
     Dosage: UNK
  7. ASCORBIC ACID [Concomitant]
     Dosage: UNK
  8. ACETYLSALICYLIC ACID [Concomitant]
     Dosage: 81 MG, 1X/DAY
  9. ATENOLOL [Concomitant]
     Dosage: 50 MG, 1X/DAY
     Dates: end: 20110601
  10. LIPITOR [Concomitant]
     Dosage: 20 MG, 1X/DAY
  11. SUTENT [Suspect]
     Indication: RENAL CANCER METASTATIC
     Dosage: 25 MG, 1X/DAY
     Dates: start: 20100801
  12. VITAMIN E [Concomitant]
     Dosage: UNK

REACTIONS (1)
  - PROTEINURIA [None]
